FAERS Safety Report 12557014 (Version 4)
Quarter: 2016Q3

REPORT INFORMATION
  Report Type: Spontaneous
  Country: FR (occurrence: FR)
  Receive Date: 20160714
  Receipt Date: 20160829
  Transmission Date: 20161109
  Serious: Yes (Hospitalization, Disabling, Other)
  Sender: FDA-Public Use
  Company Number: FR-009507513-1607FRA005721

PATIENT
  Age: 44 Year
  Sex: Male
  Weight: 105 kg

DRUGS (2)
  1. ENALAPRIL MALEATE. [Suspect]
     Active Substance: ENALAPRIL MALEATE
     Indication: HYPERTENSION
     Dosage: 1 DF, QD
     Route: 048
     Dates: start: 20131213
  2. EZETROL [Suspect]
     Active Substance: EZETIMIBE
     Dosage: 1 DF, QD
     Route: 048
     Dates: start: 20130419

REACTIONS (1)
  - Muscle rupture [Not Recovered/Not Resolved]

NARRATIVE: CASE EVENT DATE: 20160620
